FAERS Safety Report 20264915 (Version 6)
Quarter: 2023Q1

REPORT INFORMATION
  Report Type: Spontaneous
  Country: US (occurrence: US)
  Receive Date: 20211231
  Receipt Date: 20230111
  Transmission Date: 20230417
  Serious: Yes (Hospitalization, Other)
  Sender: FDA-Public Use
  Company Number: US-PFIZER INC-202101317952

PATIENT
  Age: 75 Year
  Sex: Female

DRUGS (1)
  1. XELJANZ [Suspect]
     Active Substance: TOFACITINIB CITRATE
     Dosage: 5 MG, 2X/DAY

REACTIONS (6)
  - Senile osteoporosis [Unknown]
  - Hip fracture [Unknown]
  - Spinal operation [Unknown]
  - Drug ineffective [Unknown]
  - Daydreaming [Unknown]
  - Amnesia [Unknown]

NARRATIVE: CASE EVENT DATE: 20211201
